FAERS Safety Report 10218358 (Version 3)
Quarter: 2014Q2

REPORT INFORMATION
  Report Type: Spontaneous
  Country: IT (occurrence: IT)
  Receive Date: 20140605
  Receipt Date: 20140624
  Transmission Date: 20141212
  Serious: Yes (Hospitalization)
  Sender: FDA-Public Use
  Company Number: IT-RANBAXY-2014RR-81781

PATIENT
  Age: 24 Year
  Sex: Female

DRUGS (2)
  1. AMOXICILLIN [Suspect]
     Indication: DRUG ABUSE
     Dosage: 2 G, DAILY
     Route: 048
     Dates: start: 20140420, end: 20140427
  2. KETOPROFEN [Suspect]
     Indication: DRUG ABUSE
     Dosage: 8 DF, DAILY
     Route: 048
     Dates: start: 20140420, end: 20140427

REACTIONS (1)
  - Toxic epidermal necrolysis [Recovering/Resolving]
